FAERS Safety Report 5796495-1 (Version None)
Quarter: 2008Q3

REPORT INFORMATION
  Report Type: 
  Country: None (occurrence: None)
  Receive Date: 20080701
  Receipt Date: 20080619
  Transmission Date: 20090109
  Serious: Yes (Hospitalization, Congenital Anomaly)
  Sender: FDA-Public Use
  Company Number: A0715873A

PATIENT
  Sex: Female
  Weight: 2.9 kg

DRUGS (4)
  1. PAXIL [Suspect]
     Indication: DRUG USE FOR UNKNOWN INDICATION
     Dosage: 40MG PER DAY
     Dates: start: 20050714, end: 20060109
  2. PAROXETINE HCL [Suspect]
     Indication: ANXIETY
     Dates: start: 20040101, end: 20050101
  3. VITAMIN TAB [Concomitant]
     Dates: start: 20020101, end: 20050101
  4. ATIVAN [Concomitant]
     Indication: ANXIETY
     Dates: start: 20050601

REACTIONS (9)
  - AORTIC STENOSIS [None]
  - ATRIAL SEPTAL DEFECT [None]
  - BICUSPID AORTIC VALVE [None]
  - CARDIAC FAILURE CONGESTIVE [None]
  - COARCTATION OF THE AORTA [None]
  - DRUG EXPOSURE DURING PREGNANCY [None]
  - HYPERTENSION [None]
  - PATENT DUCTUS ARTERIOSUS [None]
  - VENTRICULAR SEPTAL DEFECT [None]
